FAERS Safety Report 4936370-5 (Version None)
Quarter: 2006Q1

REPORT INFORMATION
  Report Type: 
  Country: None (occurrence: None)
  Receive Date: 20060127
  Receipt Date: 20051119
  Transmission Date: 20060701
  Serious: Yes (Other)
  Sender: FDA-Public Use
  Company Number: 2005138724

PATIENT
  Age: 82 Year
  Sex: Male

DRUGS (10)
  1. LYRICA [Suspect]
     Indication: NEUROPATHY PERIPHERAL
     Dosage: 2 IN 1 D
     Dates: start: 20051001
  2. LIPITOR [Concomitant]
  3. IMDUR [Concomitant]
  4. PREVACID [Concomitant]
  5. NOVOLIN R [Concomitant]
  6. NORVASC [Concomitant]
  7. GLIPIZIDE [Concomitant]
  8. LASIX [Concomitant]
  9. TAMSULOSIN HCL [Concomitant]
  10. PLAVIX [Concomitant]

REACTIONS (4)
  - AZOTAEMIA [None]
  - HYPOAESTHESIA [None]
  - OEDEMA PERIPHERAL [None]
  - RENAL FAILURE [None]
